FAERS Safety Report 6591267-2 (Version None)
Quarter: 2010Q1

REPORT INFORMATION
  Report Type: 
  Country: None (occurrence: None)
  Receive Date: 20100219
  Receipt Date: 20100212
  Transmission Date: 20100710
  Serious: Yes (Other)
  Sender: FDA-Public Use
  Company Number: US-BAYER-201011687BCC

PATIENT
  Age: 20 Year
  Sex: Female
  Weight: 75 kg

DRUGS (1)
  1. BACTINE LIQUID [Suspect]
     Indication: DRUG USE FOR UNKNOWN INDICATION
     Dosage: CONSUMER SOAKED CONTACTS LENS IN BACTINE BY MISTAKE AND PUT ONE INTO HER EYE
     Route: 047
     Dates: start: 20100212

REACTIONS (5)
  - EYE IRRITATION [None]
  - EYE PAIN [None]
  - OCULAR DISCOMFORT [None]
  - OCULAR HYPERAEMIA [None]
  - VISUAL IMPAIRMENT [None]
